FAERS Safety Report 12719796 (Version 2)
Quarter: 2016Q4

REPORT INFORMATION
  Report Type: Spontaneous
  Country: US (occurrence: US)
  Receive Date: 20160907
  Receipt Date: 20161031
  Transmission Date: 20170207
  Serious: No
  Sender: FDA-Public Use
  Company Number: US-JNJFOC-20160818549

PATIENT
  Age: 33 Year
  Sex: Female
  Weight: 52.16 kg

DRUGS (2)
  1. PREDNISONE. [Concomitant]
     Active Substance: PREDNISONE
     Indication: COLITIS ULCERATIVE
     Route: 048
     Dates: start: 201608
  2. SIMPONI [Suspect]
     Active Substance: GOLIMUMAB
     Indication: COLITIS ULCERATIVE
     Route: 058
     Dates: start: 201512

REACTIONS (7)
  - Exposure during pregnancy [Recovered/Resolved]
  - Accidental exposure to product [Unknown]
  - Device malfunction [Unknown]
  - Off label use [Unknown]
  - Colitis ulcerative [Not Recovered/Not Resolved]
  - Drug dose omission [Unknown]
  - Inappropriate schedule of drug administration [Unknown]

NARRATIVE: CASE EVENT DATE: 2015
